FAERS Safety Report 24677869 (Version 1)
Quarter: 2024Q4

REPORT INFORMATION
  Report Type: Spontaneous
  Country: FR (occurrence: FR)
  Receive Date: 20241129
  Receipt Date: 20241129
  Transmission Date: 20250114
  Serious: Yes (Life-Threatening, Disabling, Other)
  Sender: ALEXION PHARMACEUTICALS
  Company Number: FR-BRISTOL-MYERS SQUIBB COMPANY-2024- 074129

PATIENT
  Age: 33 Year
  Weight: 86 kg

DRUGS (8)
  1. NEXIUM [Suspect]
     Active Substance: ESOMEPRAZOLE MAGNESIUM
     Indication: Gastrointestinal disorder
  2. ELIQUIS [Suspect]
     Active Substance: APIXABAN
     Indication: Thrombosis
     Route: 065
  3. ELIQUIS [Suspect]
     Active Substance: APIXABAN
     Indication: Phlebitis
  4. LYRICA [Suspect]
     Active Substance: PREGABALIN
     Indication: Facial pain
  5. RIVOTRIL [Suspect]
     Active Substance: CLONAZEPAM
     Indication: Facial pain
     Dosage: DAILY
  6. TRAMADOL [Concomitant]
     Active Substance: TRAMADOL
     Indication: Pain
  7. Temesta [Concomitant]
     Indication: Insomnia
     Dosage: AT BED TIME
  8. DESOBEL [Concomitant]
     Indication: Menstruation delayed

REACTIONS (6)
  - Phlebitis [Not Recovered/Not Resolved]
  - Thrombosis [Not Recovered/Not Resolved]
  - Intervertebral disc protrusion [Unknown]
  - Staphylococcal infection [Unknown]
  - Staphylococcal infection [Unknown]
  - Arthropathy [Unknown]
